FAERS Safety Report 10225109 (Version 1)
Quarter: 2014Q2

REPORT INFORMATION
  Report Type: Spontaneous
  Country: SE (occurrence: SE)
  Receive Date: 20140609
  Receipt Date: 20140609
  Transmission Date: 20141212
  Serious: Yes (Other)
  Sender: FDA-Public Use
  Company Number: SE-WATSON-2013-25171

PATIENT
  Sex: Female

DRUGS (1)
  1. METOPROLOL ACTAVIS [Suspect]
     Indication: PRODUCT USED FOR UNKNOWN INDICATION
     Route: 065

REACTIONS (3)
  - Conjunctivitis [Not Recovered/Not Resolved]
  - Hallucination [Not Recovered/Not Resolved]
  - Laryngitis [Not Recovered/Not Resolved]
